FAERS Safety Report 16126443 (Version 1)
Quarter: 2019Q1

REPORT INFORMATION
  Report Type: Spontaneous
  Country: FR (occurrence: FR)
  Receive Date: 20190328
  Receipt Date: 20190328
  Transmission Date: 20190418
  Serious: Yes (Death)
  Sender: FDA-Public Use
  Company Number: FR-TEVA-2019-FR-1030079

PATIENT
  Age: 87 Year
  Sex: Male
  Weight: 88 kg

DRUGS (5)
  1. AMOXICILLINE [Suspect]
     Active Substance: AMOXICILLIN
     Dosage: 1 GRAM DAILY;
  2. CALCIPARINE [Suspect]
     Active Substance: HEPARIN CALCIUM
     Indication: ATRIAL FIBRILLATION
     Dosage: 1.3 ML DAILY;
     Route: 058
     Dates: start: 20181130
  3. BACTRIM [Concomitant]
     Active Substance: SULFAMETHOXAZOLE\TRIMETHOPRIM
     Dosage: 1 DOSAGE FORMS DAILY;
  4. VALACICLOVIR [Concomitant]
     Active Substance: VALACYCLOVIR HYDROCHLORIDE
     Dosage: 500 MILLIGRAM DAILY;
  5. COUMADINE 2 MG, COMPRIM? S?CABLE [Suspect]
     Active Substance: WARFARIN SODIUM
     Indication: ATRIAL FIBRILLATION
     Dosage: 2 MILLIGRAM DAILY;
     Route: 048
     Dates: start: 20181226

REACTIONS (4)
  - Cardio-respiratory arrest [None]
  - Extradural haematoma [Fatal]
  - Chest wall haematoma [Fatal]
  - Traumatic haemothorax [Fatal]

NARRATIVE: CASE EVENT DATE: 20190131
